FAERS Safety Report 9803880 (Version 1)
Quarter: 2014Q1

REPORT INFORMATION
  Report Type: Spontaneous
  Country: US (occurrence: US)
  Receive Date: 20140108
  Receipt Date: 20140108
  Transmission Date: 20141002
  Serious: No
  Sender: FDA-Public Use
  Company Number: US-B.I. PHARMACEUTICALS,INC./RIDGEFIELD-2014-BI-00033BP

PATIENT
  Sex: Female
  Weight: 74 kg

DRUGS (2)
  1. COMBIVENT [Suspect]
     Indication: COUGH
     Dosage: STRENGTH: 18 MCG / 103 MCG;
     Route: 055
     Dates: start: 2010, end: 201310
  2. BENICAR [Concomitant]
     Indication: HYPERTENSION
     Dosage: FORMULATION: CAPLET, STRENGTH: 20/12 MG; DAILY DOSE: 20/12 MG
     Route: 048

REACTIONS (2)
  - Nasopharyngitis [Not Recovered/Not Resolved]
  - Off label use [Unknown]
